FAERS Safety Report 10268934 (Version 1)
Quarter: 2014Q2

REPORT INFORMATION
  Report Type: Report from Study
  Country: BR (occurrence: BR)
  Receive Date: 20140630
  Receipt Date: 20140630
  Transmission Date: 20141212
  Serious: Yes (Death, Hospitalization, Other)
  Sender: FDA-Public Use
  Company Number: BR-ABBVIE-14P-020-1252949-00

PATIENT
  Age: 39 Year
  Sex: Female

DRUGS (5)
  1. HUMIRA [Suspect]
     Indication: SYSTEMIC LUPUS ERYTHEMATOSUS
     Route: 058
  2. HUMIRA [Suspect]
     Indication: RHEUMATOID ARTHRITIS
  3. PREDNISONE [Concomitant]
     Indication: RHEUMATOID ARTHRITIS
  4. DICLOFENAC SODIUM [Concomitant]
     Indication: RHEUMATOID ARTHRITIS
  5. DICLOFENAC POTASSIUM [Concomitant]
     Indication: RHEUMATOID ARTHRITIS

REACTIONS (15)
  - Somnolence [Not Recovered/Not Resolved]
  - Pain [Not Recovered/Not Resolved]
  - Aphagia [Not Recovered/Not Resolved]
  - Parosmia [Not Recovered/Not Resolved]
  - Asthenia [Not Recovered/Not Resolved]
  - Asthenia [Not Recovered/Not Resolved]
  - Pallor [Not Recovered/Not Resolved]
  - Gastritis [Not Recovered/Not Resolved]
  - Gait disturbance [Not Recovered/Not Resolved]
  - Pulmonary embolism [Fatal]
  - Deep vein thrombosis [Fatal]
  - Systemic lupus erythematosus [Fatal]
  - Myocardial infarction [Not Recovered/Not Resolved]
  - Erysipelas [Not Recovered/Not Resolved]
  - Erysipelas [Fatal]
